FAERS Safety Report 16425541 (Version 7)
Quarter: 2021Q4

REPORT INFORMATION
  Report Type: Spontaneous
  Country: US (occurrence: US)
  Receive Date: 20190613
  Receipt Date: 20211123
  Transmission Date: 20220303
  Serious: Yes (Hospitalization, Other)
  Sender: FDA-Public Use
  Company Number: US-PFIZER INC-2019247143

PATIENT
  Age: 52 Year
  Sex: Female
  Weight: 53 kg

DRUGS (2)
  1. CYTOMEL [Suspect]
     Active Substance: LIOTHYRONINE SODIUM
     Indication: Hypothyroidism
     Dosage: 50 UG, 1X/DAY
     Route: 048
  2. ARMOUR THYROID [Concomitant]
     Active Substance: THYROID, PORCINE
     Dosage: 30 MG, UNK
     Dates: start: 201904

REACTIONS (13)
  - Myocardial infarction [Recovered/Resolved]
  - Hip fracture [Unknown]
  - Breast cancer [Unknown]
  - Cataract [Unknown]
  - Neck pain [Not Recovered/Not Resolved]
  - Illness [Unknown]
  - Pharyngeal disorder [Unknown]
  - Body height decreased [Unknown]
  - Chronic obstructive pulmonary disease [Not Recovered/Not Resolved]
  - Osteoporosis [Recovering/Resolving]
  - Condition aggravated [Recovering/Resolving]
  - Limb discomfort [Recovering/Resolving]
  - Pain [Unknown]

NARRATIVE: CASE EVENT DATE: 20160101
